FAERS Safety Report 6119137-4 (Version None)
Quarter: 2009Q1

REPORT INFORMATION
  Report Type: 
  Country: None (occurrence: None)
  Receive Date: 20090316
  Receipt Date: 20090309
  Transmission Date: 20090719
  Serious: Yes (Death, Other)
  Sender: FDA-Public Use
  Company Number: FR-CELGENEUS-056-20785-09011532

PATIENT
  Sex: Male
  Weight: 76 kg

DRUGS (5)
  1. THALIDOMIDE PHARMION [Suspect]
     Indication: MULTIPLE MYELOMA
     Route: 048
     Dates: start: 20070808, end: 20081215
  2. DIGOXIN [Concomitant]
     Indication: DRUG USE FOR UNKNOWN INDICATION
     Route: 065
  3. VASTAREL [Concomitant]
     Indication: DRUG USE FOR UNKNOWN INDICATION
     Route: 065
  4. MOPRAL [Concomitant]
     Indication: DRUG USE FOR UNKNOWN INDICATION
     Route: 065
  5. LASIX [Concomitant]
     Indication: DRUG USE FOR UNKNOWN INDICATION
     Route: 065

REACTIONS (2)
  - GENERAL PHYSICAL HEALTH DETERIORATION [None]
  - THROMBOCYTOPENIA [None]
